FAERS Safety Report 5330191-X (Version None)
Quarter: 2007Q2

REPORT INFORMATION
  Report Type: 
  Country: None (occurrence: None)
  Receive Date: 20070521
  Receipt Date: 20070507
  Transmission Date: 20071010
  Serious: Yes (Other)
  Sender: FDA-Public Use
  Company Number: DE-ELI_LILLY_AND_COMPANY-DE200705001791

PATIENT
  Age: 47 Year
  Sex: Female

DRUGS (1)
  1. CYMBALTA [Suspect]
     Indication: FIBROMYALGIA
     Dosage: 120 MG, DAILY (1/D)
     Route: 048
     Dates: start: 20040101, end: 20070502

REACTIONS (5)
  - BREAST CANCER [None]
  - DIZZINESS [None]
  - HYPOTONIA [None]
  - NAUSEA [None]
  - VOMITING [None]
